FAERS Safety Report 4335699-1 (Version None)
Quarter: 2004Q2

REPORT INFORMATION
  Report Type: 
  Country: None (occurrence: None)
  Receive Date: 20040409
  Receipt Date: 20040305
  Transmission Date: 20050107
  Serious: Yes (Hospitalization)
  Sender: FDA-Public Use
  Company Number: NZ-GLAXOSMITHKLINE-B0326122A

PATIENT
  Age: 62 Year
  Sex: Male
  Weight: 110 kg

DRUGS (8)
  1. AVANDIA [Suspect]
     Dosage: 4MG TWICE PER DAY
     Route: 048
     Dates: start: 20030901
  2. INSULIN [Concomitant]
  3. ASPIRIN [Concomitant]
     Dosage: 150MG PER DAY
     Route: 048
  4. FUROSEMIDE [Concomitant]
     Dosage: 50MG PER DAY
     Route: 048
  5. METOPROLOL [Concomitant]
     Dosage: 100MG PER DAY
     Route: 048
  6. ENALAPRIL MALEATE [Concomitant]
     Dosage: 20MG PER DAY
     Route: 048
  7. ATORVASTATIN [Concomitant]
     Route: 048
  8. CIPRAMIL [Concomitant]
     Dosage: 20MG PER DAY
     Route: 048

REACTIONS (1)
  - HYPERKALAEMIA [None]
